FAERS Safety Report 7673772-0 (Version None)
Quarter: 2011Q3

REPORT INFORMATION
  Report Type: 
  Country: None (occurrence: None)
  Receive Date: 20110810
  Receipt Date: 20110803
  Transmission Date: 20111222
  Serious: Yes (Death, Other)
  Sender: FDA-Public Use
  Company Number: PK-ASTELLAS-2011US004739

PATIENT
  Sex: Male

DRUGS (1)
  1. TARCEVA [Suspect]
     Indication: NON-SMALL CELL LUNG CANCER
     Dosage: 150 MG, UID/QD
     Route: 048
     Dates: start: 20110526, end: 20110711

REACTIONS (6)
  - PLEURAL EFFUSION [None]
  - SWELLING FACE [None]
  - OEDEMA PERIPHERAL [None]
  - DYSPNOEA [None]
  - CARDIO-RESPIRATORY ARREST [None]
  - FATIGUE [None]
